FAERS Safety Report 8894704 (Version 3)
Quarter: 2012Q4

REPORT INFORMATION
  Report Type: 
  Country: US (occurrence: US)
  Receive Date: 20121108
  Receipt Date: 20121203
  Transmission Date: 20130627
  Serious: Yes (Hospitalization, Other)
  Sender: FDA-Public Use
  Company Number: US-AMGEN-USASP2012070687

PATIENT
  Age: 58 Year
  Sex: Male
  Weight: 105.1 kg

DRUGS (16)
  1. XGEVA [Suspect]
     Indication: PROSTATE CANCER
     Dosage: 120 mg, q4wk
     Dates: start: 20120406
  2. XGEVA [Suspect]
     Indication: METASTASES TO BONE
     Dosage: 120 mg, q4wk
     Dates: start: 20120511
  3. XGEVA [Suspect]
     Dosage: 120 mg, q4wk
     Dates: start: 20120810
  4. XGEVA [Suspect]
     Dosage: 120 mg, q4wk
     Dates: start: 20120921
  5. RITUXIMAB [Suspect]
     Indication: PROSTATE CANCER
     Dosage: UNK
     Dates: start: 20120508, end: 20121023
  6. LUPRON [Concomitant]
     Indication: METASTASES TO BONE
     Dosage: 45 mg, q6mo
     Dates: start: 20120406
  7. CALCIUM [Concomitant]
     Dosage: 1200 mg, qd
  8. VITAMIN D                          /00318501/ [Concomitant]
     Dosage: 2000 IU, qd
  9. CYCLOPHOSPHAMIDE [Concomitant]
     Indication: PROSTATE CANCER
     Dosage: UNK
     Dates: start: 20110521
  10. VINCRISTINE [Concomitant]
     Indication: PROSTATE CANCER
     Dosage: UNK
     Dates: start: 20110521
  11. DOXORUBICIN [Concomitant]
     Indication: PROSTATE CANCER
     Dosage: UNK
     Dates: start: 20110521
  12. DEXAMETHASONE [Concomitant]
     Indication: PROSTATE CANCER
     Dosage: UNK
     Dates: start: 20110521
  13. CASODEX [Concomitant]
     Dosage: 50 mg, qd
     Dates: start: 20120313
  14. BACTRIM [Concomitant]
  15. ACYCLOVIR                          /00587301/ [Concomitant]
  16. FLUCONAZOLE [Concomitant]

REACTIONS (23)
  - Meningitis aseptic [Unknown]
  - Human antichimeric antibody test [Unknown]
  - Encephalitis [Unknown]
  - Serum sickness [Unknown]
  - Cognitive disorder [Unknown]
  - Dizziness [Recovering/Resolving]
  - Amnesia [Recovering/Resolving]
  - Pyrexia [Recovering/Resolving]
  - Tremor [Unknown]
  - Chills [Unknown]
  - Blood lactic acid increased [Unknown]
  - Hot flush [Unknown]
  - Arthralgia [Recovered/Resolved]
  - Back pain [Recovered/Resolved]
  - Influenza like illness [Recovered/Resolved]
  - Rash pruritic [Recovering/Resolving]
  - Contusion [Unknown]
  - Hypersomnia [Unknown]
  - Hair disorder [Unknown]
  - Asthenia [Unknown]
  - Speech disorder [Recovered/Resolved]
  - Diarrhoea [Recovered/Resolved]
  - Blood phosphorus decreased [Unknown]
